FAERS Safety Report 6386809-6 (Version None)
Quarter: 2009Q4

REPORT INFORMATION
  Report Type: 
  Country: None (occurrence: None)
  Receive Date: 20091002
  Receipt Date: 20090924
  Transmission Date: 20100525
  Serious: Yes (Life-Threatening, Hospitalization)
  Sender: FDA-Public Use
  Company Number: B0594857A

PATIENT
  Sex: Male

DRUGS (1)
  1. ARIXTRA [Suspect]
     Indication: THROMBOSIS PROPHYLAXIS
     Dosage: 2.5MG PER DAY
     Route: 058
     Dates: start: 20090620, end: 20090625

REACTIONS (6)
  - ANAEMIA [None]
  - DUODENAL ULCER HAEMORRHAGE [None]
  - MALAISE [None]
  - MELAENA [None]
  - NAUSEA [None]
  - THROMBOSIS [None]
